FAERS Safety Report 5205734-7 (Version None)
Quarter: 2007Q1

REPORT INFORMATION
  Report Type: 
  Country: None (occurrence: None)
  Receive Date: 20070105
  Receipt Date: 20070105
  Transmission Date: 20070707
  Serious: Yes (Hospitalization)
  Sender: FDA-Public Use
  Company Number: None

PATIENT
  Age: 93 Year
  Sex: Male
  Weight: 84 kg

DRUGS (4)
  1. LISINOPRIL [Suspect]
     Indication: HYPERTENSION
     Dosage: 10 MG ONCE DAILY PO
     Route: 048
     Dates: start: 19990414, end: 20060816
  2. HYDROCHLOROTHIAZIDE [Concomitant]
  3. DOXAZOSIN MESYLATE [Concomitant]
  4. MOMETASONE FUROATE [Concomitant]

REACTIONS (1)
  - RENAL FAILURE ACUTE [None]
